FAERS Safety Report 7472460-3 (Version None)
Quarter: 2011Q2

REPORT INFORMATION
  Report Type: 
  Country: None (occurrence: None)
  Receive Date: 20110511
  Receipt Date: 20110405
  Transmission Date: 20111010
  Serious: Yes (Hospitalization, Other)
  Sender: FDA-Public Use
  Company Number: US-BAYER-201027124NA

PATIENT
  Age: 34 Year
  Sex: Female
  Weight: 63.492 kg

DRUGS (21)
  1. SINGULAIR [Concomitant]
     Dosage: 10 MG, UNK
     Dates: start: 20060602, end: 20060916
  2. DICLOFENAC SODIUM [Concomitant]
     Dosage: 75 MG, BID
     Dates: start: 20081124
  3. TERCONAZOLE [Concomitant]
     Dosage: UNK
     Route: 067
     Dates: start: 20090924, end: 20090926
  4. YASMIN [Suspect]
     Indication: MENSTRUATION IRREGULAR
  5. IBUPROFEN [Concomitant]
     Dosage: UNK
     Dates: start: 20070801
  6. TRAMADOL HCL [Concomitant]
     Dosage: 550 MG, QID
     Dates: start: 20070627
  7. DIAZEPAM [Concomitant]
     Dosage: 5 MG, HS
     Dates: start: 20090629
  8. HYDROCODONE BITARTRATE AND ACETAMINOPHEN [Concomitant]
     Indication: PAIN
     Dosage: UNK
     Route: 048
     Dates: start: 20101210
  9. AZITHROMYCIN [Concomitant]
     Dosage: 250 MG, UNK
     Dates: start: 20090418, end: 20090422
  10. PANTOPRAZOLE [Concomitant]
     Dosage: 40 MG, QD
     Dates: start: 20100218
  11. YASMIN [Suspect]
     Indication: OVARIAN CYST
  12. METHOCARBAMOL [Concomitant]
     Indication: MYALGIA
     Dosage: 750 MG, HS
     Dates: start: 20070627
  13. ONDANSETRON [Concomitant]
     Indication: NAUSEA
     Dosage: 4 MG, QID
     Dates: start: 20070824, end: 20081210
  14. PROCHLORPERAZINE TAB [Concomitant]
     Indication: VOMITING
  15. YAZ [Suspect]
     Indication: PRODUCT USED FOR UNKNOWN INDICATION
     Route: 048
     Dates: start: 20020101
  16. YASMIN [Suspect]
     Indication: PREMENSTRUAL SYNDROME
     Dosage: UNK
     Route: 048
     Dates: start: 20060101, end: 20090101
  17. PROCHLORPERAZINE TAB [Concomitant]
     Indication: NAUSEA
     Dosage: 10 MG, QID
     Route: 048
     Dates: start: 20081210
  18. FLUCONAZOLE [Concomitant]
     Dosage: 150 MG, UNK
     Route: 048
  19. BELLADONNA ALKALOIDS [Concomitant]
     Indication: ABDOMINAL PAIN
     Dosage: UNK UNK, QID
     Route: 048
     Dates: start: 20081210
  20. AZITHROMYCIN [Concomitant]
     Dosage: 250 MG, UNK
     Route: 048
     Dates: start: 20060714, end: 20060718
  21. PROCTOFOAM [PRAMOCAINE HYDROCHLORIDE] [Concomitant]

REACTIONS (6)
  - ABDOMINAL PAIN UPPER [None]
  - NAUSEA [None]
  - FLATULENCE [None]
  - DYSPEPSIA [None]
  - GALLBLADDER INJURY [None]
  - BILIARY DYSKINESIA [None]
